FAERS Safety Report 7740253-5 (Version None)
Quarter: 2011Q3

REPORT INFORMATION
  Report Type: 
  Country: None (occurrence: None)
  Receive Date: 20110909
  Receipt Date: 20110906
  Transmission Date: 20111222
  Serious: Yes (Other)
  Sender: FDA-Public Use
  Company Number: CHPA2011US11985

PATIENT
  Age: 58 Year
  Sex: Female
  Weight: 56.689 kg

DRUGS (6)
  1. HABITROL [Suspect]
     Indication: SMOKING CESSATION THERAPY
     Dosage: 21 MG, QD
     Route: 062
     Dates: start: 20110827
  2. SEROQUEL [Concomitant]
     Dosage: UNK
     Route: 048
  3. OXYCONTIN [Concomitant]
     Dosage: UNK
     Route: 048
  4. WELLBUTRIN [Concomitant]
     Indication: ANTIDEPRESSANT THERAPY
     Dosage: UNK
     Route: 048
  5. ASPIRIN [Concomitant]
     Indication: PAIN
     Route: 048
  6. TOPAMAX [Concomitant]
     Dosage: UNK
     Route: 048

REACTIONS (3)
  - FALL [None]
  - DISORIENTATION [None]
  - DIZZINESS [None]
